FAERS Safety Report 22056861 (Version 4)
Quarter: 2023Q4

REPORT INFORMATION
  Report Type: Report from Study
  Country: US (occurrence: US)
  Receive Date: 20230303
  Receipt Date: 20231008
  Transmission Date: 20240110
  Serious: Yes (Hospitalization, Other)
  Sender: FDA-Public Use
  Company Number: US-ABBVIE-4325181

PATIENT
  Age: 74 Year
  Sex: Male
  Weight: 82 kg

DRUGS (8)
  1. RINVOQ [Suspect]
     Active Substance: UPADACITINIB
     Indication: Rheumatoid arthritis
     Dosage: STRENGTH: 15 MILLIGRAM
     Route: 048
     Dates: start: 20210901
  2. RINVOQ [Suspect]
     Active Substance: UPADACITINIB
     Indication: Rheumatoid arthritis
     Dosage: FORM STRENGTH: 15 MG
     Route: 048
     Dates: start: 20200603
  3. KLOR-CON [Concomitant]
     Active Substance: POTASSIUM CHLORIDE
     Indication: Product used for unknown indication
  4. GABAPENTIN [Concomitant]
     Active Substance: GABAPENTIN
     Indication: Arthralgia
     Dosage: 300 MILLIGRAM
  5. ATORVASTATIN [Concomitant]
     Active Substance: ATORVASTATIN
     Indication: Product used for unknown indication
     Dosage: 80 MILLIGRAM
  6. ISOSORBIDE MONONITRATE [Concomitant]
     Active Substance: ISOSORBIDE MONONITRATE
     Indication: Product used for unknown indication
     Dosage: 60 MILLIGRAM
  7. ENALAPRIL [Concomitant]
     Active Substance: ENALAPRIL
     Indication: Blood pressure measurement
  8. HYDROCHLOROTHIAZIDE [Concomitant]
     Active Substance: HYDROCHLOROTHIAZIDE
     Indication: Product used for unknown indication

REACTIONS (7)
  - Aortic aneurysm [Recovered/Resolved]
  - Cardiac aneurysm [Unknown]
  - Arthritis [Recovering/Resolving]
  - Spondylitis [Recovering/Resolving]
  - Gait disturbance [Recovered/Resolved]
  - Peripheral swelling [Recovering/Resolving]
  - Sciatic nerve neuropathy [Recovering/Resolving]

NARRATIVE: CASE EVENT DATE: 20230104
